FAERS Safety Report 9837827 (Version 1)
Quarter: 2014Q1

REPORT INFORMATION
  Report Type: Spontaneous
  Country: US (occurrence: None)
  Receive Date: 20140117
  Receipt Date: 20140117
  Transmission Date: 20141002
  Serious: Yes (Hospitalization)
  Sender: FDA-Public Use
  Company Number: None

PATIENT
  Age: 35 Year
  Sex: Female
  Weight: 56 kg

DRUGS (1)
  1. VENOFER [Suspect]
     Indication: IRON DEFICIENCY ANAEMIA
     Route: 042
     Dates: start: 20131218, end: 20131218

REACTIONS (6)
  - Hypotension [None]
  - Nausea [None]
  - Vomiting [None]
  - Rash [None]
  - Unresponsive to stimuli [None]
  - Infusion related reaction [None]
